FAERS Safety Report 16277378 (Version 2)
Quarter: 2019Q3

REPORT INFORMATION
  Report Type: Report from Study
  Country: US (occurrence: US)
  Receive Date: 20190506
  Receipt Date: 20190704
  Transmission Date: 20191004
  Serious: Yes (Other)
  Sender: FDA-Public Use
  Company Number: US-MYLANLABS-2019M1040053

PATIENT
  Sex: Female

DRUGS (1)
  1. GLATIRAMER ACETATE INJECTION [Suspect]
     Active Substance: GLATIRAMER ACETATE
     Indication: RELAPSING-REMITTING MULTIPLE SCLEROSIS
     Dosage: 40 MILLIGRAM, 3XW
     Route: 058

REACTIONS (9)
  - Pain [Unknown]
  - Anxiety [Unknown]
  - Respiratory tract infection [Unknown]
  - Abdominal pain upper [Unknown]
  - Flushing [Unknown]
  - Dizziness [Unknown]
  - Drug ineffective [Unknown]
  - Nasopharyngitis [Unknown]
  - Back pain [Unknown]
